FAERS Safety Report 13898897 (Version 8)
Quarter: 2018Q1

REPORT INFORMATION
  Report Type: Spontaneous
  Country: GB (occurrence: GB)
  Receive Date: 20170824
  Receipt Date: 20180105
  Transmission Date: 20180508
  Serious: Yes (Death, Hospitalization, Other)
  Sender: FDA-Public Use
  Company Number: GB-SA-2017SA154365

PATIENT
  Age: 66 Year
  Sex: Female

DRUGS (3)
  1. FABRAZYME [Suspect]
     Active Substance: AGALSIDASE BETA
     Route: 041
     Dates: start: 2017, end: 20171124
  2. EMLA [Suspect]
     Active Substance: LIDOCAINE\PRILOCAINE
     Route: 065
  3. FABRAZYME [Suspect]
     Active Substance: AGALSIDASE BETA
     Route: 041
     Dates: end: 20170927

REACTIONS (14)
  - Chest pain [Unknown]
  - Ventricular tachycardia [Not Recovered/Not Resolved]
  - Myocardial infarction [Unknown]
  - Hordeolum [Unknown]
  - Fatigue [Not Recovered/Not Resolved]
  - Death [Fatal]
  - Lower respiratory tract infection [Unknown]
  - Cardiac disorder [Unknown]
  - Product use issue [Unknown]
  - Cardiac failure [Unknown]
  - Poor venous access [Unknown]
  - Contusion [Unknown]
  - Dyspnoea exertional [Not Recovered/Not Resolved]
  - Dyspnoea [Unknown]

NARRATIVE: CASE EVENT DATE: 2017
